FAERS Safety Report 23573290 (Version 1)
Quarter: 2024Q1

REPORT INFORMATION
  Report Type: Spontaneous
  Country: US (occurrence: US)
  Receive Date: 20240228
  Receipt Date: 20240228
  Transmission Date: 20240409
  Serious: Yes (Other)
  Sender: FDA-Public Use
  Company Number: US-ABBVIE-5645110

PATIENT
  Sex: Female
  Weight: 56 kg

DRUGS (2)
  1. REFRESH PLUS [Suspect]
     Active Substance: CARBOXYMETHYLCELLULOSE SODIUM
     Indication: Eye disorder prophylaxis
     Dosage: FOUR DROPS ON EACH EYE?CMC 5MG/ML SOL UD
     Route: 047
     Dates: start: 20240201
  2. REFRESH PLUS [Suspect]
     Active Substance: CARBOXYMETHYLCELLULOSE SODIUM
     Indication: Eye disorder prophylaxis
     Dosage: FOUR DROPS ON EACH EYE?CMC 5MG/ML SOL UD?PF?AT LEAST FIVE YEARS AGO.
     Route: 047
     Dates: start: 2019, end: 202311

REACTIONS (2)
  - Cataract [Not Recovered/Not Resolved]
  - Eye discharge [Not Recovered/Not Resolved]

NARRATIVE: CASE EVENT DATE: 20230101
